FAERS Safety Report 5969724-9 (Version None)
Quarter: 2008Q4

REPORT INFORMATION
  Report Type: 
  Country: None (occurrence: None)
  Receive Date: 20081126
  Receipt Date: 20081118
  Transmission Date: 20090506
  Serious: Yes (Death)
  Sender: FDA-Public Use
  Company Number: JP-PFIZER INC-2008092348

PATIENT
  Sex: Male
  Weight: 46 kg

DRUGS (9)
  1. SUTENT [Suspect]
     Indication: RENAL CELL CARCINOMA
     Route: 048
     Dates: start: 20081006, end: 20081017
  2. NOVAMIN [Concomitant]
     Route: 048
     Dates: end: 20081018
  3. OXYCONTIN [Concomitant]
     Route: 048
     Dates: end: 20081017
  4. MICARDIS [Concomitant]
     Route: 048
     Dates: end: 20081026
  5. TENORMIN [Concomitant]
     Route: 048
     Dates: end: 20081026
  6. CALONAL [Concomitant]
     Route: 048
     Dates: end: 20081021
  7. PANTOSIN [Concomitant]
     Route: 048
     Dates: end: 20081021
  8. MAGNESIUM OXIDE [Concomitant]
     Route: 048
     Dates: end: 20081021
  9. FENTANYL [Concomitant]
     Route: 062
     Dates: start: 20081018

REACTIONS (3)
  - DISEASE PROGRESSION [None]
  - PLATELET COUNT DECREASED [None]
  - RENAL CELL CARCINOMA [None]
